FAERS Safety Report 15901204 (Version 5)
Quarter: 2020Q2

REPORT INFORMATION
  Report Type: Spontaneous
  Country: JP (occurrence: JP)
  Receive Date: 20190201
  Receipt Date: 20200519
  Transmission Date: 20200713
  Serious: Yes (Death)
  Sender: FDA-Public Use
  Company Number: JP-JNJFOC-20190137913

PATIENT
  Age: 69 Year
  Sex: Female
  Weight: 38.1 kg

DRUGS (5)
  1. TREMFYA [Suspect]
     Active Substance: GUSELKUMAB
     Route: 058
     Dates: start: 20181221, end: 20181221
  2. TIGASON [Concomitant]
     Indication: PSORIASIS
     Route: 048
     Dates: start: 20150123, end: 20190124
  3. TREMFYA [Suspect]
     Active Substance: GUSELKUMAB
  4. METHOTREXATE. [Concomitant]
     Active Substance: METHOTREXATE
     Dates: start: 20190114, end: 20190114
  5. TREMFYA [Suspect]
     Active Substance: GUSELKUMAB
     Indication: PSORIATIC ARTHROPATHY
     Route: 058
     Dates: start: 20180803

REACTIONS (2)
  - Death [Fatal]
  - Frontotemporal dementia [Fatal]

NARRATIVE: CASE EVENT DATE: 20190124
